FAERS Safety Report 6171117-9 (Version None)
Quarter: 2009Q2

REPORT INFORMATION
  Report Type: 
  Country: None (occurrence: None)
  Receive Date: 20090429
  Receipt Date: 20090417
  Transmission Date: 20091009
  Serious: Yes (Hospitalization, Other)
  Sender: FDA-Public Use
  Company Number: PHHY2009BR14690

PATIENT

DRUGS (8)
  1. EXELON [Suspect]
     Indication: DEMENTIA ALZHEIMER'S TYPE
     Dosage: 2 DF/DAY
     Route: 048
  2. EXELON [Suspect]
     Indication: DEMENTIA ALZHEIMER'S TYPE
     Dosage: 9 MG, 1 PATCH/24 HR
     Route: 062
  3. EXELON [Suspect]
     Dosage: 9 MG PATCH AND 18 MG PATCH AT DIIFERENT SITES
     Route: 062
     Dates: start: 20090416
  4. STALEVO 100 [Concomitant]
     Indication: DEMENTIA
     Dosage: 0.5 DF, Q4H
     Route: 048
     Dates: start: 20050101
  5. VENLAFAXINE HYDROCHLORIDE [Concomitant]
     Indication: DEPRESSION
     Dosage: 75 MG, QD
     Route: 048
     Dates: start: 20090201
  6. MEMANTINE HCL [Concomitant]
     Indication: DEMENTIA ALZHEIMER'S TYPE
     Dosage: 10 MG, Q12H
     Route: 048
     Dates: start: 20050101
  7. BETAHISTINE HYDROCHLORIDE [Concomitant]
     Indication: DIZZINESS
     Dosage: 16 MG, Q12H
     Dates: start: 20050101
  8. RISPERIDONE [Concomitant]
     Dosage: 1 DF, QD
     Route: 048
     Dates: start: 20090201

REACTIONS (12)
  - ABASIA [None]
  - ABNORMAL BEHAVIOUR [None]
  - CONVULSION [None]
  - DIVERTICULITIS [None]
  - HYPERHIDROSIS [None]
  - MEMORY IMPAIRMENT [None]
  - NEUROLOGICAL DECOMPENSATION [None]
  - PNEUMONIA [None]
  - PSYCHOTIC DISORDER [None]
  - SOMNOLENCE [None]
  - URINARY TRACT INFECTION [None]
  - WRONG TECHNIQUE IN DRUG USAGE PROCESS [None]
